FAERS Safety Report 5349348-7 (Version None)
Quarter: 2007Q2

REPORT INFORMATION
  Report Type: 
  Country: None (occurrence: None)
  Receive Date: 20070605
  Receipt Date: 20070423
  Transmission Date: 20071010
  Serious: Yes (Hospitalization, Other)
  Sender: FDA-Public Use
  Company Number: 2007US001170

PATIENT
  Age: 4 Year
  Sex: Male
  Weight: 21.7 kg

DRUGS (13)
  1. PROGRAF [Suspect]
     Indication: KIDNEY TRANSPLANT REJECTION
     Dates: start: 20060521
  2. DACLIZUMAB (DACLIZUMAB) [Suspect]
     Indication: KIDNEY TRANSPLANT REJECTION
     Dosage: SEE IMAGE
     Route: 042
     Dates: start: 20060521, end: 20060521
  3. DACLIZUMAB (DACLIZUMAB) [Suspect]
     Indication: KIDNEY TRANSPLANT REJECTION
     Dosage: SEE IMAGE
     Route: 042
     Dates: start: 20060620, end: 20060620
  4. DACLIZUMAB (DACLIZUMAB) [Suspect]
     Indication: KIDNEY TRANSPLANT REJECTION
     Dosage: SEE IMAGE
     Route: 042
     Dates: start: 20060703, end: 20060703
  5. DACLIZUMAB (DACLIZUMAB) [Suspect]
     Indication: KIDNEY TRANSPLANT REJECTION
     Dosage: SEE IMAGE
     Route: 042
     Dates: start: 20060718, end: 20060718
  6. CELLCEPT [Concomitant]
  7. PREDNISONE TAB [Concomitant]
  8. AMLODIPINE [Concomitant]
  9. VALGANCICLOVIR (VALFANCICLOVIR) [Concomitant]
  10. REGLAN [Concomitant]
  11. SEPTRA [Concomitant]
  12. PROTONIX [Concomitant]
  13. MIRALAX [Concomitant]

REACTIONS (3)
  - HEART RATE INCREASED [None]
  - RESPIRATORY RATE INCREASED [None]
  - TREATMENT NONCOMPLIANCE [None]
